FAERS Safety Report 8823746 (Version 1)
Quarter: 2012Q4

REPORT INFORMATION
  Report Type: 
  Country: US (occurrence: US)
  Receive Date: 20121003
  Receipt Date: 20121003
  Transmission Date: 20130627
  Serious: No
  Sender: FDA-Public Use
  Company Number: US-VERTEX PHARMACEUTICAL INC.-2012-021214

PATIENT
  Age: 44 Year
  Sex: Female

DRUGS (6)
  1. VX-950 [Suspect]
     Indication: HEPATITIS C
     Dosage: 750 mg, tid
     Route: 048
     Dates: start: 20120810
  2. RIBAVIRIN [Concomitant]
     Indication: HEPATITIS C
     Dosage: 5 DF, qd
     Route: 048
     Dates: start: 20120810, end: 20120910
  3. RIBAVIRIN [Concomitant]
     Dosage: 3 DF, qd
     Route: 048
     Dates: start: 20120910
  4. PEGASYS [Concomitant]
     Indication: HEPATITIS C
     Dosage: 180 ?g, UNK
     Route: 058
     Dates: start: 20120810
  5. COMBIVENT [Concomitant]
     Indication: CHRONIC OBSTRUCTIVE PULMONARY DISEASE
     Dosage: 1 puff, tid, as needed
  6. IMIPRAMINE [Concomitant]
     Indication: SLEEP DISORDER
     Dosage: UNK, qd
     Route: 048
     Dates: start: 201206

REACTIONS (3)
  - Fatigue [Not Recovered/Not Resolved]
  - Anaemia [Not Recovered/Not Resolved]
  - Nausea [Not Recovered/Not Resolved]
